FAERS Safety Report 16298193 (Version 3)
Quarter: 2019Q3

REPORT INFORMATION
  Report Type: Report from Study
  Country: US (occurrence: US)
  Receive Date: 20190510
  Receipt Date: 20190723
  Transmission Date: 20191004
  Serious: Yes (Hospitalization)
  Sender: FDA-Public Use
  Company Number: US-GILEAD-2019-0403448

PATIENT
  Age: 17 Year
  Sex: Female

DRUGS (32)
  1. FOSAMAX [Concomitant]
     Active Substance: ALENDRONATE SODIUM
  2. GAMMAGARD [Concomitant]
     Active Substance: HUMAN IMMUNOGLOBULIN G
  3. HYDROCORT [HYDROCORTISONE ACETATE] [Concomitant]
  4. METFORMIN [Concomitant]
     Active Substance: METFORMIN HYDROCHLORIDE
  5. PULMICORT TURBUHALER [Concomitant]
     Active Substance: BUDESONIDE
  6. TYLENOL [Concomitant]
     Active Substance: ACETAMINOPHEN
  7. ZANTAC [Concomitant]
     Active Substance: RANITIDINE HYDROCHLORIDE
  8. ALENDRONATE [Concomitant]
     Active Substance: ALENDRONATE SODIUM
  9. FLONASE [Concomitant]
     Active Substance: FLUTICASONE PROPIONATE
  10. NORDITROPIN [Concomitant]
     Active Substance: SOMATROPIN
  11. PROCARDIA [Concomitant]
     Active Substance: NIFEDIPINE
  12. CYPROHEPTADINE. [Concomitant]
     Active Substance: CYPROHEPTADINE
  13. NIFEDIPINE. [Concomitant]
     Active Substance: NIFEDIPINE
  14. PREDNISONE. [Concomitant]
     Active Substance: PREDNISONE
  15. TOBRAMYCIN. [Concomitant]
     Active Substance: TOBRAMYCIN
  16. BUDESONIDE. [Concomitant]
     Active Substance: BUDESONIDE
  17. CALCITROL [CALCITRIOL] [Concomitant]
     Active Substance: CALCITRIOL
  18. CO Q 10 [UBIDECARENONE] [Concomitant]
  19. HYDROCHLOROTHIAZIDE. [Concomitant]
     Active Substance: HYDROCHLOROTHIAZIDE
  20. VITAMINS NOS [Concomitant]
     Active Substance: VITAMINS
  21. PULMOZYME [Concomitant]
     Active Substance: DORNASE ALFA
  22. VITAMIN B [Concomitant]
     Active Substance: VITAMIN B
  23. AZTREONAM LYSINE [Suspect]
     Active Substance: AZTREONAM LYSINE
     Indication: CYSTIC FIBROSIS
     Dosage: 75 MG, TID, 21 DAYS ON, 7 DAYS OFF
     Route: 055
     Dates: start: 20170511
  24. CARNITOR [Concomitant]
     Active Substance: LEVOCARNITINE
  25. PRILOSEC [Concomitant]
     Active Substance: OMEPRAZOLE MAGNESIUM
  26. SODIUM CHLORIDE. [Concomitant]
     Active Substance: SODIUM CHLORIDE
  27. STELARA [Concomitant]
     Active Substance: USTEKINUMAB
  28. ALBUTEROL [SALBUTAMOL] [Concomitant]
     Active Substance: ALBUTEROL
  29. CALCIUM [Concomitant]
     Active Substance: CALCIUM
  30. ALPHA LIPOIC ACID [Concomitant]
     Active Substance: .ALPHA.-LIPOIC ACID
  31. SWEEN [Concomitant]
  32. ZYRTEC [Concomitant]
     Active Substance: CETIRIZINE HYDROCHLORIDE

REACTIONS (6)
  - Secretion discharge [Not Recovered/Not Resolved]
  - Intentional dose omission [Unknown]
  - Surgery [Not Recovered/Not Resolved]
  - Sputum discoloured [Not Recovered/Not Resolved]
  - Increased viscosity of bronchial secretion [Not Recovered/Not Resolved]
  - Off label use [Unknown]

NARRATIVE: CASE EVENT DATE: 201904
